FAERS Safety Report 8850510 (Version 3)
Quarter: 2012Q4

REPORT INFORMATION
  Report Type: 
  Country: AU (occurrence: AU)
  Receive Date: 20121019
  Receipt Date: 20121228
  Transmission Date: 20130627
  Serious: Yes (Death, Hospitalization)
  Sender: FDA-Public Use
  Company Number: AU-B.I. PHARMACEUTICALS,INC./RIDGEFIELD-2012-AU-01769AU

PATIENT
  Age: 89 None
  Sex: Male
  Weight: 72 kg

DRUGS (12)
  1. PRADAXA [Suspect]
     Indication: CEREBROVASCULAR ACCIDENT PROPHYLAXIS
     Dosage: 220 mg
     Dates: start: 20110722, end: 20121004
  2. PRADAXA [Suspect]
     Indication: ATRIAL FIBRILLATION
  3. ISOSORBIDE MONONITRATE [Concomitant]
     Indication: CORONARY ARTERY DISEASE
     Dates: start: 20091110
  4. FLUOXETINE [Concomitant]
     Indication: DEPRESSION
     Dates: start: 20030525
  5. LERCANIDIPINE [Concomitant]
     Indication: CORONARY ARTERY DISEASE
     Dates: start: 20100726
  6. LERCANIDIPINE [Concomitant]
     Indication: HYPERTENSION
  7. GEMFIBROZIL [Concomitant]
     Indication: DYSLIPIDAEMIA
     Dosage: 1200 mg
     Dates: start: 20010307
  8. ATENOLOL [Concomitant]
     Indication: CORONARY ARTERY DISEASE
     Dates: start: 20010307
  9. ATENOLOL [Concomitant]
     Indication: HYPERTENSION
  10. OMEPRAZOLE [Concomitant]
     Indication: GASTROOESOPHAGEAL REFLUX DISEASE
     Dates: start: 20100330
  11. PRAVASTATIN [Concomitant]
     Dosage: 400 mg
     Dates: start: 20040127
  12. BUPRENORPHINE [Concomitant]
     Dosage: 5mcg/hr
     Dates: start: 20101019

REACTIONS (3)
  - Multi-organ failure [Fatal]
  - Lung cancer metastatic [Fatal]
  - Melaena [Recovered/Resolved]
